FAERS Safety Report 17693285 (Version 1)
Quarter: 2020Q2

REPORT INFORMATION
  Report Type: Spontaneous
  Country: US (occurrence: US)
  Receive Date: 20200422
  Receipt Date: 20200422
  Transmission Date: 20200714
  Serious: Yes (Hospitalization)
  Sender: FDA-Public Use
  Company Number: US-PFIZER INC-2020133771

PATIENT
  Age: 73 Year
  Sex: Male

DRUGS (1)
  1. DAURISMO [Suspect]
     Active Substance: GLASDEGIB
     Indication: ACUTE MYELOID LEUKAEMIA
     Dosage: 50 MG, DAILY
     Route: 048

REACTIONS (6)
  - Constipation [Unknown]
  - Nausea [Unknown]
  - Platelet count decreased [Unknown]
  - Myalgia [Unknown]
  - Taste disorder [Unknown]
  - Decreased appetite [Unknown]
